FAERS Safety Report 5251225-7 (Version None)
Quarter: 2007Q1

REPORT INFORMATION
  Report Type: 
  Country: None (occurrence: None)
  Receive Date: 20070228
  Receipt Date: 20061208
  Transmission Date: 20070707
  Serious: No
  Sender: FDA-Public Use
  Company Number: US-GLAXOSMITHKLINE-A0630965A

PATIENT
  Age: 52 Year
  Sex: Female

DRUGS (8)
  1. LAMICTAL [Suspect]
     Indication: BIPOLAR DISORDER
     Dosage: 400MG PER DAY
     Route: 048
  2. WELLBUTRIN [Suspect]
     Route: 048
  3. CYMBALTA [Concomitant]
  4. TOPAMAX [Concomitant]
  5. DYAZIDE [Concomitant]
  6. LIPITOR [Concomitant]
  7. NEXIUM [Concomitant]
  8. SYNTHROID [Concomitant]

REACTIONS (2)
  - HYPERLIPIDAEMIA [None]
  - WEIGHT INCREASED [None]
